FAERS Safety Report 7749992-3 (Version None)
Quarter: 2011Q3

REPORT INFORMATION
  Report Type: 
  Country: None (occurrence: None)
  Receive Date: 20110912
  Receipt Date: 20110905
  Transmission Date: 20111222
  Serious: Yes (Hospitalization)
  Sender: FDA-Public Use
  Company Number: 2011SP01935

PATIENT
  Sex: Male

DRUGS (1)
  1. MIRTAZAPINE [Suspect]
     Indication: PRODUCT USED FOR UNKNOWN INDICATION
     Dosage: 45 MG
     Dates: start: 20100901

REACTIONS (11)
  - FACIAL BONES FRACTURE [None]
  - SYNCOPE [None]
  - CHROMATURIA [None]
  - MYALGIA [None]
  - PAIN [None]
  - NAUSEA [None]
  - DIARRHOEA [None]
  - EPILEPSY [None]
  - BACK PAIN [None]
  - VOMITING [None]
  - ABNORMAL DREAMS [None]
